FAERS Safety Report 9051958 (Version 2)
Quarter: 2013Q1

REPORT INFORMATION
  Report Type: Spontaneous
  Country: FR (occurrence: FR)
  Receive Date: 20130207
  Receipt Date: 20130218
  Transmission Date: 20140127
  Serious: Yes (Hospitalization, Other)
  Sender: FDA-Public Use
  Company Number: FR-JNJFOC-20130115346

PATIENT
  Sex: Female

DRUGS (6)
  1. XARELTO [Suspect]
     Indication: ATRIAL FIBRILLATION
     Route: 048
     Dates: start: 20121220
  2. XARELTO [Suspect]
     Indication: CEREBROVASCULAR ACCIDENT PROPHYLAXIS
     Route: 048
     Dates: start: 20121220
  3. CARDENSIEL [Concomitant]
     Route: 065
  4. KENZEN [Concomitant]
     Route: 065
  5. AMLOR [Concomitant]
     Route: 065
  6. PRAVASTATIN [Concomitant]
     Route: 065

REACTIONS (2)
  - Acute coronary syndrome [Recovered/Resolved]
  - Cardiac failure [Recovered/Resolved]
